FAERS Safety Report 13026179 (Version 3)
Quarter: 2017Q2

REPORT INFORMATION
  Report Type: Report from Study
  Country: None (occurrence: US)
  Receive Date: 20161214
  Receipt Date: 20170503
  Transmission Date: 20170830
  Serious: Yes (Hospitalization, Other)
  Sender: FDA-Public Use
  Company Number: US-ABBVIE-16K-163-1805512-00

PATIENT
  Age: 44 Year
  Sex: Female

DRUGS (5)
  1. DEPO-PROVERA [Concomitant]
     Active Substance: MEDROXYPROGESTERONE ACETATE
     Indication: PRODUCT USED FOR UNKNOWN INDICATION
  2. HUMIRA [Suspect]
     Active Substance: ADALIMUMAB
     Indication: PSORIASIS
     Route: 058
     Dates: start: 20160927, end: 201611
  3. LOSARTAN AND HYDROCHLOROTHIAZIDE [Concomitant]
     Active Substance: HYDROCHLOROTHIAZIDE\LOSARTAN POTASSIUM
     Indication: PRODUCT USED FOR UNKNOWN INDICATION
  4. HUMIRA [Suspect]
     Active Substance: ADALIMUMAB
     Route: 058
     Dates: start: 2016
  5. LEVOTHYROXINE. [Concomitant]
     Active Substance: LEVOTHYROXINE
     Indication: PRODUCT USED FOR UNKNOWN INDICATION

REACTIONS (9)
  - Myocardial necrosis marker increased [Recovered/Resolved]
  - Condition aggravated [Recovered/Resolved]
  - Joint injury [Recovered/Resolved]
  - Thrombosis [Recovered/Resolved]
  - Renal vascular thrombosis [Recovered/Resolved]
  - Pulmonary embolism [Recovered/Resolved]
  - Myocardial strain [Unknown]
  - Condition aggravated [Unknown]
  - Stress [Unknown]

NARRATIVE: CASE EVENT DATE: 2016
